FAERS Safety Report 5942674-X (Version None)
Quarter: 2008Q4

REPORT INFORMATION
  Report Type: 
  Country: None (occurrence: None)
  Receive Date: 20081106
  Receipt Date: 20081029
  Transmission Date: 20090506
  Serious: Yes (Hospitalization)
  Sender: FDA-Public Use
  Company Number: GB-RANBAXY-2008RR-19005

PATIENT
  Age: 56 Year
  Sex: Female

DRUGS (7)
  1. LANSOPRAZOLE [Suspect]
     Indication: GASTRIC PH DECREASED
     Dosage: 30 MG, UNK
     Route: 048
     Dates: start: 20080401, end: 20080801
  2. LANSOPRAZOLE [Suspect]
     Dosage: 30 MG, QD
     Route: 048
     Dates: end: 20080901
  3. SIMVASTATIN [Suspect]
     Indication: BLOOD CHOLESTEROL INCREASED
     Dosage: 40 MG, UNK
     Route: 048
     Dates: start: 20080501, end: 20080801
  4. ACETAMINOPHEN W/ CODEINE [Concomitant]
     Dosage: UNK
     Route: 048
  5. DICLOFENAC [Concomitant]
     Dosage: 50 MG, TID
     Route: 048
  6. FLUOXETINE [Concomitant]
     Dosage: 20 MG, QD
     Route: 048
  7. TIBOLONE [Concomitant]
     Dosage: 2.5 MG, QD
     Route: 048

REACTIONS (6)
  - ASTHENIA [None]
  - EYE SWELLING [None]
  - MALAISE [None]
  - NIGHTMARE [None]
  - PHARYNGEAL OEDEMA [None]
  - SWOLLEN TONGUE [None]
